FAERS Safety Report 20684082 (Version 1)
Quarter: 2022Q2

REPORT INFORMATION
  Report Type: Spontaneous
  Country: US (occurrence: None)
  Receive Date: 20220405
  Receipt Date: 20220405
  Transmission Date: 20220720
  Serious: No
  Sender: FDA-Public Use
  Company Number: None

PATIENT

DRUGS (9)
  1. LORBRENA [Suspect]
     Active Substance: LORLATINIB
     Indication: Lung neoplasm malignant
     Dosage: FREQUENCY : DAILY;?
     Route: 048
     Dates: start: 202112
  2. COLACE [Concomitant]
  3. FENTANYL [Concomitant]
  4. OXYCODONE HCI [Concomitant]
  5. ELIQUIS [Concomitant]
     Active Substance: APIXABAN
  6. ZOFRAN [Concomitant]
     Active Substance: ONDANSETRON HYDROCHLORIDE
  7. MIRALAX [Concomitant]
  8. TUMS [Concomitant]
     Active Substance: CALCIUM CARBONATE
  9. XGEVA [Concomitant]

REACTIONS (1)
  - Disease progression [None]
